FAERS Safety Report 21058198 (Version 8)
Quarter: 2022Q4

REPORT INFORMATION
  Report Type: Report from Study
  Country: FR (occurrence: None)
  Receive Date: 20220708
  Receipt Date: 20221003
  Transmission Date: 20230113
  Serious: Yes (Hospitalization)
  Sender: FDA-Public Use
  Company Number: FR-Eisai Medical Research-EC-2022-118610

PATIENT
  Age: 72 Year
  Sex: Male
  Weight: 68 kg

DRUGS (9)
  1. LENVATINIB [Suspect]
     Active Substance: LENVATINIB
     Indication: Clear cell renal cell carcinoma
     Route: 048
     Dates: start: 20220517, end: 20220607
  2. QUAVONLIMAB [Suspect]
     Active Substance: QUAVONLIMAB
     Indication: Clear cell renal cell carcinoma
     Dosage: QUAVONLIMAB (MK-1308) 25 MG (+) PEMBROLIZUMAB (MK-3475) 400 MG
     Route: 041
     Dates: start: 20220517, end: 20220517
  3. EZETIMIBE [Concomitant]
     Active Substance: EZETIMIBE
     Dates: start: 202111
  4. RAMIPRIL [Concomitant]
     Active Substance: RAMIPRIL
     Dates: start: 202111
  5. REPAGLINIDE [Concomitant]
     Active Substance: REPAGLINIDE
     Dates: start: 202111
  6. ASPIRIN [Concomitant]
     Active Substance: ASPIRIN
     Dates: start: 202111
  7. LANTUS [Concomitant]
     Active Substance: INSULIN GLARGINE
     Route: 058
     Dates: start: 202111
  8. JANUMET [Concomitant]
     Active Substance: METFORMIN HYDROCHLORIDE\SITAGLIPTIN PHOSPHATE
     Dates: start: 202111
  9. PEMBROLIZUMAB [Suspect]
     Active Substance: PEMBROLIZUMAB

REACTIONS (1)
  - General physical health deterioration [Recovered/Resolved]

NARRATIVE: CASE EVENT DATE: 20220524
